FAERS Safety Report 11392833 (Version 1)
Quarter: 2015Q3

REPORT INFORMATION
  Report Type: Spontaneous
  Country: BR (occurrence: BR)
  Receive Date: 20150818
  Receipt Date: 20150818
  Transmission Date: 20151125
  Serious: Yes (Hospitalization)
  Sender: FDA-Public Use
  Company Number: BR-ASTRAZENECA-2015SE78511

PATIENT
  Sex: Female

DRUGS (2)
  1. ASPIRIN. [Concomitant]
     Active Substance: ASPIRIN
     Indication: CATHETERISATION CARDIAC
     Route: 048
     Dates: start: 201508
  2. BRILINTA [Suspect]
     Active Substance: TICAGRELOR
     Indication: CATHETERISATION CARDIAC
     Route: 048
     Dates: start: 201508, end: 201508

REACTIONS (2)
  - Angina pectoris [Recovered/Resolved]
  - Rash [Recovered/Resolved]

NARRATIVE: CASE EVENT DATE: 201508
